FAERS Safety Report 14099951 (Version 1)
Quarter: 2017Q4

REPORT INFORMATION
  Report Type: Spontaneous
  Country: IT (occurrence: IT)
  Receive Date: 20171017
  Receipt Date: 20171017
  Transmission Date: 20180321
  Serious: Yes (Hospitalization)
  Sender: FDA-Public Use
  Company Number: IT-SA-2017SA197717

PATIENT
  Age: 87 Year
  Sex: Female
  Weight: 40 kg

DRUGS (2)
  1. DUROGESIC [Concomitant]
     Active Substance: FENTANYL
     Indication: ANALGESIC THERAPY
     Route: 062
  2. CLEXANE [Suspect]
     Active Substance: ENOXAPARIN SODIUM
     Route: 051

REACTIONS (3)
  - Mucosal inflammation [Not Recovered/Not Resolved]
  - Stevens-Johnson syndrome [Not Recovered/Not Resolved]
  - Oropharyngeal blistering [Not Recovered/Not Resolved]

NARRATIVE: CASE EVENT DATE: 20171004
